FAERS Safety Report 8961589 (Version 1)
Quarter: 2012Q4

REPORT INFORMATION
  Report Type: Report from Study
  Country: FR (occurrence: FR)
  Receive Date: 20121212
  Receipt Date: 20121212
  Transmission Date: 20130627
  Serious: Yes (Hospitalization, Other)
  Sender: FDA-Public Use
  Company Number: FR-BAXTER-2012BAX026330

PATIENT
  Age: 43 Year
  Sex: Female
  Weight: 72 kg

DRUGS (6)
  1. HOLOXAN [Suspect]
     Indication: METASTATIC BREAST CANCER
     Route: 042
     Dates: start: 20080620
  2. HOLOXAN [Suspect]
     Route: 042
     Dates: start: 20100622
  3. CISPLATIN [Suspect]
     Indication: METASTATIC BREAST CANCER
     Route: 042
     Dates: start: 20080620
  4. CISPLATIN [Suspect]
     Route: 042
     Dates: start: 20100622
  5. BEVACIZUMAB [Suspect]
     Indication: METASTATIC BREAST CANCER
     Route: 042
     Dates: start: 20080623
  6. BEVACIZUMAB [Suspect]
     Route: 042
     Dates: start: 20100620

REACTIONS (2)
  - Febrile infection [Recovered/Resolved]
  - Neutropenia [Recovered/Resolved]
